FAERS Safety Report 6025011-4 (Version None)
Quarter: 2008Q4

REPORT INFORMATION
  Report Type: 
  Country: None (occurrence: None)
  Receive Date: 20081231
  Receipt Date: 20081223
  Transmission Date: 20090506
  Serious: Yes (Other)
  Sender: FDA-Public Use
  Company Number: US-JNJFOC-20081206872

PATIENT
  Age: 73 Year
  Sex: Female
  Weight: 72.58 kg

DRUGS (11)
  1. TYLENOL (CAPLET) [Suspect]
     Route: 048
  2. TYLENOL (CAPLET) [Suspect]
     Indication: BACK PAIN
     Route: 048
  3. METOPROLOL [Concomitant]
     Indication: HYPERTENSION
  4. NORVASC [Concomitant]
     Indication: HYPERTENSION
  5. XANAX [Concomitant]
     Indication: STRESS
  6. ZETIA [Concomitant]
     Indication: BLOOD CHOLESTEROL
  7. PROTONIX [Concomitant]
     Indication: DYSPEPSIA
  8. LEVOTHYROXINE SODIUM [Concomitant]
     Indication: THYROID DISORDER
  9. ASPIRIN [Concomitant]
     Indication: PROPHYLAXIS
  10. LOVASTATIN [Concomitant]
     Indication: BLOOD CHOLESTEROL ABNORMAL
  11. LITHIUM [Concomitant]
     Indication: BIPOLAR DISORDER

REACTIONS (3)
  - ABDOMINAL PAIN UPPER [None]
  - NAUSEA [None]
  - RECTAL HAEMORRHAGE [None]
